FAERS Safety Report 17510274 (Version 1)
Quarter: 2020Q1

REPORT INFORMATION
  Report Type: Spontaneous
  Country: PT (occurrence: PT)
  Receive Date: 20200306
  Receipt Date: 20200306
  Transmission Date: 20200409
  Serious: Yes (Hospitalization, Other)
  Sender: FDA-Public Use
  Company Number: PT-ABBVIE-20K-130-3308139-00

PATIENT
  Age: 45 Year
  Sex: Male

DRUGS (5)
  1. LOPINAVIR/RITONAVIR [Suspect]
     Active Substance: LOPINAVIR\RITONAVIR
     Indication: HIV INFECTION
     Route: 065
     Dates: start: 2009
  2. TENOFOVIR DISOPROXIL FUMARATE. [Suspect]
     Active Substance: TENOFOVIR DISOPROXIL FUMARATE
     Indication: HIV INFECTION
     Route: 065
     Dates: start: 2011
  3. EFAVIRENZ. [Suspect]
     Active Substance: EFAVIRENZ
     Indication: HIV INFECTION
     Route: 065
     Dates: start: 2011
  4. EFAVIRENZ. [Suspect]
     Active Substance: EFAVIRENZ
     Route: 065
     Dates: start: 201701
  5. ZIDOVUDINE. [Suspect]
     Active Substance: ZIDOVUDINE
     Indication: HIV INFECTION
     Route: 065
     Dates: start: 2009

REACTIONS (5)
  - Cardiac failure acute [Recovering/Resolving]
  - Headache [Unknown]
  - Myalgia [Unknown]
  - Renal impairment [Unknown]
  - Insomnia [Unknown]

NARRATIVE: CASE EVENT DATE: 201701
